FAERS Safety Report 9514944 (Version 1)
Quarter: 2013Q1

REPORT INFORMATION
  Report Type: Spontaneous
  Country: US (occurrence: None)
  Receive Date: 20130305
  Receipt Date: 20130305
  Transmission Date: 20140127
  Serious: Yes (Other)
  Sender: FDA-Public Use
  Company Number: 163-21880-12112722

PATIENT
  Age: 72 Year
  Sex: Female

DRUGS (4)
  1. REVLIMID [Suspect]
     Indication: PLASMA CELL MYELOMA
     Route: 048
     Dates: start: 20121025, end: 2012
  2. UNIFLEX (BETAMETHASONE VALERATE) [Concomitant]
  3. FEN-RX [Concomitant]
  4. PHILLIP^S COLON HEALTH (LACTOBAC) [Concomitant]

REACTIONS (1)
  - Sinusitis [None]
